FAERS Safety Report 10949677 (Version 2)
Quarter: 2015Q2

REPORT INFORMATION
  Report Type: Spontaneous
  Country: US (occurrence: US)
  Receive Date: 20150324
  Receipt Date: 20150417
  Transmission Date: 20150821
  Serious: No
  Sender: FDA-Public Use
  Company Number: US-009507513-1503USA010481

PATIENT
  Age: 67 Year
  Sex: Male

DRUGS (1)
  1. NASONEX [Suspect]
     Active Substance: MOMETASONE FUROATE
     Indication: NASOPHARYNGITIS
     Dosage: UNK
     Route: 045
     Dates: start: 20150313

REACTIONS (4)
  - Dry eye [Unknown]
  - Product quality issue [Unknown]
  - Eye irritation [Unknown]
  - Ocular hyperaemia [Recovering/Resolving]

NARRATIVE: CASE EVENT DATE: 20150313
